FAERS Safety Report 11645644 (Version 1)
Quarter: 2015Q4

REPORT INFORMATION
  Report Type: Spontaneous
  Country: US (occurrence: US)
  Receive Date: 20151020
  Receipt Date: 20151020
  Transmission Date: 20160304
  Serious: No
  Sender: FDA-Public Use
  Company Number: US-ENDO PHARMACEUTICALS INC.-CARI20140014

PATIENT
  Age: 55 Year
  Sex: Female

DRUGS (4)
  1. CARISOPRODOL TABLETS 350MG [Suspect]
     Active Substance: CARISOPRODOL
     Indication: INSOMNIA
  2. CARISOPRODOL TABLETS 350MG [Suspect]
     Active Substance: CARISOPRODOL
     Indication: BACK PAIN
  3. CARISOPRODOL TABLETS 350MG [Suspect]
     Active Substance: CARISOPRODOL
     Indication: BRUXISM
     Dosage: UNKNOWN
     Route: 048
  4. ALPRAZOLAM. [Suspect]
     Active Substance: ALPRAZOLAM
     Indication: PRODUCT USED FOR UNKNOWN INDICATION
     Dosage: UNKNOWN
     Route: 048

REACTIONS (1)
  - Rash pruritic [Not Recovered/Not Resolved]

NARRATIVE: CASE EVENT DATE: 201405
